FAERS Safety Report 23597100 (Version 2)
Quarter: 2024Q1

REPORT INFORMATION
  Report Type: Report from Study
  Country: US (occurrence: US)
  Receive Date: 20240305
  Receipt Date: 20240328
  Transmission Date: 20240410
  Serious: No
  Sender: FDA-Public Use
  Company Number: US-SANDOZ-SDZ2023US063303

PATIENT
  Age: 13 Year
  Sex: Male

DRUGS (2)
  1. OMNITROPE [Suspect]
     Active Substance: SOMATROPIN
     Indication: Product used for unknown indication
     Dosage: 2.2 MG, QD
     Route: 058
     Dates: start: 20231130, end: 20231130
  2. OMNITROPE [Suspect]
     Active Substance: SOMATROPIN
     Indication: Product used for unknown indication
     Dosage: 2.2 MG, QD
     Route: 058
     Dates: start: 20231130, end: 20231130

REACTIONS (2)
  - Injection site haemorrhage [Unknown]
  - Device leakage [Unknown]

NARRATIVE: CASE EVENT DATE: 20231130
